FAERS Safety Report 12916212 (Version 2)
Quarter: 2016Q4

REPORT INFORMATION
  Report Type: Spontaneous
  Country: US (occurrence: US)
  Receive Date: 20161107
  Receipt Date: 20161111
  Transmission Date: 20170207
  Serious: Yes (Other)
  Sender: FDA-Public Use
  Company Number: US-HORIZON-BUP-0111-2016

PATIENT
  Age: 30 Year
  Sex: Female

DRUGS (1)
  1. BUPHENYL [Suspect]
     Active Substance: SODIUM PHENYLBUTYRATE
     Indication: PRODUCT USED FOR UNKNOWN INDICATION
     Dosage: 6 G FOUR TIMES A DAY
     Dates: start: 20150831

REACTIONS (3)
  - Amino acid level increased [Unknown]
  - Urinary tract infection [Unknown]
  - Seizure [Unknown]
